FAERS Safety Report 5814254-8 (Version None)
Quarter: 2008Q3

REPORT INFORMATION
  Report Type: 
  Country: None (occurrence: None)
  Receive Date: 20080717
  Receipt Date: 20080708
  Transmission Date: 20090109
  Serious: Yes (Other)
  Sender: FDA-Public Use
  Company Number: US-ELI_LILLY_AND_COMPANY-US200711000938

PATIENT
  Sex: Female

DRUGS (3)
  1. HUMALOG [Suspect]
     Dosage: 50 U, 3/D
     Dates: start: 20071104
  2. HUMULIN R [Suspect]
     Dates: start: 19880101
  3. HUMULIN N [Suspect]
     Dates: start: 19880101

REACTIONS (9)
  - BLINDNESS [None]
  - BLOOD GLUCOSE DECREASED [None]
  - EYE HAEMORRHAGE [None]
  - GAIT DISTURBANCE [None]
  - GLYCOSYLATED HAEMOGLOBIN INCREASED [None]
  - HYPOAESTHESIA FACIAL [None]
  - MYODESOPSIA [None]
  - VISUAL ACUITY REDUCED [None]
  - VISUAL IMPAIRMENT [None]
